FAERS Safety Report 17082998 (Version 2)
Quarter: 2019Q4

REPORT INFORMATION
  Report Type: Spontaneous
  Country: PT (occurrence: PT)
  Receive Date: 20191127
  Receipt Date: 20191212
  Transmission Date: 20200122
  Serious: Yes (Other)
  Sender: FDA-Public Use
  Company Number: PT-BAXTER-2019BAX024107

PATIENT
  Age: 55 Year
  Sex: Female

DRUGS (10)
  1. OMEPRAZOLE. [Concomitant]
     Active Substance: OMEPRAZOLE
     Indication: PRODUCT USED FOR UNKNOWN INDICATION
     Route: 048
  2. ADCETRIS [Suspect]
     Active Substance: BRENTUXIMAB VEDOTIN
     Indication: FUNGAL INFECTION
     Dosage: OFF LABEL USE
     Route: 065
  3. DOXIL [Suspect]
     Active Substance: DOXORUBICIN HYDROCHLORIDE
     Indication: FUNGAL INFECTION
     Route: 065
  4. IFN ALPHA [Suspect]
     Active Substance: INTERFERON ALFA-2A OR INTERFERON ALFA-2B
     Indication: FUNGAL INFECTION
     Route: 065
  5. ALLOPURINOL. [Concomitant]
     Active Substance: ALLOPURINOL
     Indication: PRODUCT USED FOR UNKNOWN INDICATION
     Route: 048
  6. ENDOXAN [Suspect]
     Active Substance: CYCLOPHOSPHAMIDE
     Indication: FUNGAL INFECTION
     Route: 065
  7. VINCRISTINE [Suspect]
     Active Substance: VINCRISTINE
     Indication: FUNGAL INFECTION
     Route: 065
  8. ADCETRIS [Suspect]
     Active Substance: BRENTUXIMAB VEDOTIN
     Route: 065
     Dates: start: 20190204, end: 20190225
  9. ASPIRIN. [Suspect]
     Active Substance: ASPIRIN
     Indication: FUNGAL INFECTION
     Route: 065
  10. PREDNISONE. [Suspect]
     Active Substance: PREDNISONE
     Indication: FUNGAL INFECTION
     Route: 065

REACTIONS (4)
  - Nausea [Unknown]
  - Fatigue [Unknown]
  - Neuropathy peripheral [Not Recovered/Not Resolved]
  - Neutropenia [Unknown]

NARRATIVE: CASE EVENT DATE: 20190429
